FAERS Safety Report 23977011 (Version 1)
Quarter: 2024Q2

REPORT INFORMATION
  Report Type: Spontaneous
  Country: AT (occurrence: AT)
  Receive Date: 20240614
  Receipt Date: 20240614
  Transmission Date: 20240716
  Serious: Yes (Other)
  Sender: FDA-Public Use
  Company Number: AT-ROCHE-3576731

PATIENT
  Age: 58 Year
  Sex: Female

DRUGS (5)
  1. CARBOPLATIN [Suspect]
     Active Substance: CARBOPLATIN
     Indication: Small cell lung cancer extensive stage
     Dosage: UNK
     Dates: start: 202101, end: 202103
  2. EZETIMIBE [Suspect]
     Active Substance: EZETIMIBE
     Indication: Small cell lung cancer extensive stage
     Dosage: UNK
  3. ATORVASTATIN CALCIUM [Suspect]
     Active Substance: ATORVASTATIN CALCIUM
     Indication: Small cell lung cancer extensive stage
     Dosage: UNK
  4. TECENTRIQ [Suspect]
     Active Substance: ATEZOLIZUMAB
     Indication: Small cell lung cancer extensive stage
     Dosage: 1200 MG, EVERY 3 WEEKS
     Dates: start: 202101, end: 202103
  5. ETOPOSIDE [Suspect]
     Active Substance: ETOPOSIDE
     Indication: Small cell lung cancer extensive stage
     Dosage: UNK
     Dates: start: 202101, end: 202103

REACTIONS (3)
  - Pneumonitis [Unknown]
  - Transaminases increased [Unknown]
  - Neoplasm progression [Unknown]
